FAERS Safety Report 9607449 (Version 1)
Quarter: 2013Q4

REPORT INFORMATION
  Report Type: Spontaneous
  Country: US (occurrence: None)
  Receive Date: 20131008
  Receipt Date: 20131008
  Transmission Date: 20140711
  Serious: Yes (Death)
  Sender: FDA-Public Use
  Company Number: None

PATIENT
  Age: 65 Year
  Sex: Female

DRUGS (1)
  1. FOLFOX ABRAXANE [Suspect]
     Indication: PANCREATIC CARCINOMA
     Dosage: DOSE LEVEL 2 ON 5/9/13?20% REDUCTION ON 5/22

REACTIONS (1)
  - Disease progression [None]
